FAERS Safety Report 9127197 (Version 1)
Quarter: 2013Q1

REPORT INFORMATION
  Report Type: Spontaneous
  Country: US (occurrence: US)
  Receive Date: 20130228
  Receipt Date: 20130228
  Transmission Date: 20140127
  Serious: No
  Sender: FDA-Public Use
  Company Number: US-GLAXOSMITHKLINE-A0961153A

PATIENT
  Age: 53 Year
  Sex: Female

DRUGS (5)
  1. LAMICTAL [Suspect]
     Indication: BIPOLAR DISORDER
     Dosage: 200MG PER DAY
     Route: 048
     Dates: start: 201110
  2. ESTROGEN [Concomitant]
  3. VALTREX [Concomitant]
  4. WELLBUTRIN [Concomitant]
  5. MELOXICAM [Concomitant]

REACTIONS (1)
  - Vision blurred [Not Recovered/Not Resolved]
